FAERS Safety Report 8545532-X (Version None)
Quarter: 2012Q3

REPORT INFORMATION
  Report Type: 
  Country: None (occurrence: None)
  Receive Date: 20120727
  Receipt Date: 20111024
  Transmission Date: 20120928
  Serious: No
  Sender: FDA-Public Use
  Company Number: US-ASTRAZENECA-2011SE64368

PATIENT
  Age: 57 Year
  Sex: Female
  Weight: 73 kg

DRUGS (6)
  1. SEROQUEL [Suspect]
     Indication: BIPOLAR DISORDER
     Route: 048
     Dates: start: 20070101
  2. LAMOTRIGINE (GENERIC OF LAMICTAL) [Concomitant]
  3. LIXIPRIL [Concomitant]
  4. GENERIC OF XANAX [Concomitant]
  5. SEROQUEL [Suspect]
     Indication: SLEEP DISORDER
     Route: 048
     Dates: start: 20070101
  6. PROPION [Concomitant]

REACTIONS (8)
  - DRUG DOSE OMISSION [None]
  - BIPOLAR I DISORDER [None]
  - IRRITABILITY [None]
  - OFF LABEL USE [None]
  - CRYING [None]
  - INSOMNIA [None]
  - WRONG TECHNIQUE IN DRUG USAGE PROCESS [None]
  - NEGATIVE THOUGHTS [None]
